FAERS Safety Report 22041917 (Version 2)
Quarter: 2023Q1

REPORT INFORMATION
  Report Type: Spontaneous
  Country: US (occurrence: US)
  Receive Date: 20230227
  Receipt Date: 20230327
  Transmission Date: 20230418
  Serious: No
  Sender: FDA-Public Use
  Company Number: US-AMGEN-USASP2023031220

PATIENT
  Age: 63 Year
  Sex: Male
  Weight: 160 kg

DRUGS (1)
  1. LUMAKRAS [Suspect]
     Active Substance: SOTORASIB
     Indication: Product used for unknown indication
     Dosage: 1200 MILLIGRAM, QD
     Route: 065

REACTIONS (1)
  - Extra dose administered [Unknown]
